FAERS Safety Report 23742662 (Version 1)
Quarter: 2024Q2

REPORT INFORMATION
  Report Type: Spontaneous
  Country: US (occurrence: None)
  Receive Date: 20240412
  Receipt Date: 20240412
  Transmission Date: 20240716
  Serious: No
  Sender: FDA-Public Use
  Company Number: None

PATIENT
  Age: 31 Year
  Sex: Male
  Weight: 108 kg

DRUGS (10)
  1. NALTREXONE [Suspect]
     Active Substance: NALTREXONE
     Indication: Mental impairment
     Dosage: FREQUENCY : AT BEDTIME;?
     Route: 048
     Dates: start: 20211020, end: 20240328
  2. NALTREXONE [Suspect]
     Active Substance: NALTREXONE
     Indication: Pain
  3. BUPRENORPHINE [Concomitant]
     Active Substance: BUPRENORPHINE
  4. ALLOPURINOL [Concomitant]
     Active Substance: ALLOPURINOL
  5. CLONIDINE [Concomitant]
     Active Substance: CLONIDINE
  6. LAMOTRIGINE [Concomitant]
     Active Substance: LAMOTRIGINE
  7. JORNAY PM EXTENDED-RELEASE [Concomitant]
     Active Substance: METHYLPHENIDATE HYDROCHLORIDE
  8. Quiviviq [Concomitant]
  9. NALTREXONE [Concomitant]
     Active Substance: NALTREXONE
  10. FISH OIL [Concomitant]
     Active Substance: FISH OIL

REACTIONS (9)
  - Product substitution issue [None]
  - Therapeutic response changed [None]
  - Tachyphrenia [None]
  - Insomnia [None]
  - Dyskinesia [None]
  - Bowel movement irregularity [None]
  - Constipation [None]
  - Mental impairment [None]
  - Anxiety [None]

NARRATIVE: CASE EVENT DATE: 20240325
